FAERS Safety Report 6450652-X (Version None)
Quarter: 2009Q4

REPORT INFORMATION
  Report Type: 
  Country: None (occurrence: None)
  Receive Date: 20091120
  Receipt Date: 20091120
  Transmission Date: 20100525
  Serious: Yes (Hospitalization)
  Sender: FDA-Public Use
  Company Number: None

PATIENT
  Age: 83 Year
  Sex: Male
  Weight: 77.11 kg

DRUGS (2)
  1. TERAZOSIN HCL [Suspect]
     Indication: HYPERTENSION
     Dosage: 5 MG TID PO
     Route: 048
     Dates: start: 20090722, end: 20091010
  2. TERAZOSIN HCL [Suspect]
     Indication: PROSTATIC DISORDER
     Dosage: 5 MG TID PO
     Route: 048
     Dates: start: 20090722, end: 20091010

REACTIONS (5)
  - DIZZINESS [None]
  - FALL [None]
  - HIP FRACTURE [None]
  - HYPOTENSION [None]
  - SYNCOPE [None]
